FAERS Safety Report 6662049-8 (Version None)
Quarter: 2010Q1

REPORT INFORMATION
  Report Type: 
  Country: None (occurrence: None)
  Receive Date: 20100331
  Receipt Date: 20100129
  Transmission Date: 20100710
  Serious: No
  Sender: FDA-Public Use
  Company Number: US-BRISTOL-MYERS SQUIBB COMPANY-14956155

PATIENT
  Age: 69 Year
  Sex: Male
  Weight: 95 kg

DRUGS (14)
  1. ERBITUX [Suspect]
     Indication: COLON CANCER METASTATIC
     Dosage: POSSIBLY 500MG
     Dates: start: 20091123
  2. ATENOLOL [Concomitant]
  3. COUMADIN [Concomitant]
     Indication: THROMBOSIS
  4. AVASTIN [Concomitant]
  5. TEMAZEPAM [Concomitant]
     Indication: INSOMNIA
     Dosage: DIFFICULTY SLEEPING RELATED TO THE STEROID PRE-MEDICATION
  6. ALLOPURINOL [Concomitant]
  7. NASONEX [Concomitant]
  8. CLARITIN [Concomitant]
  9. VITAMINS + MINERALS [Concomitant]
  10. GENTEAL [Concomitant]
     Route: 031
  11. BENADRYL [Concomitant]
     Indication: RASH
     Dosage: 1 DOSAGE FORM = 1 TABLET
     Route: 048
  12. BENADRYL [Concomitant]
     Indication: PRURITUS
     Dosage: 1 DOSAGE FORM = 1 TABLET
     Route: 048
  13. BENADRYL [Concomitant]
     Indication: HYPERSENSITIVITY
     Dosage: 1 DOSAGE FORM = 1 TABLET
     Route: 048
  14. STEROIDS [Concomitant]
     Indication: PREMEDICATION

REACTIONS (1)
  - RASH [None]
